FAERS Safety Report 5848671-7 (Version None)
Quarter: 2008Q3

REPORT INFORMATION
  Report Type: 
  Country: None (occurrence: None)
  Receive Date: 20080814
  Receipt Date: 20080716
  Transmission Date: 20090109
  Serious: Yes (Disabling)
  Sender: FDA-Public Use
  Company Number: 15049

PATIENT
  Age: 85 Year
  Sex: Female
  Weight: 74.3899 kg

DRUGS (6)
  1. MORPHINE SULFATE [Suspect]
     Indication: PROCEDURAL PAIN
     Dosage: ONE TAB /3-4HRS ORALLY
     Route: 048
     Dates: start: 20080206, end: 20080201
  2. LISINOPRIL [Concomitant]
  3. COUMADIN [Concomitant]
  4. FERROUS SULFATE TAB [Concomitant]
  5. CELEBREX [Concomitant]
  6. CALCITRIOL [Concomitant]

REACTIONS (3)
  - DEAFNESS [None]
  - PHARMACEUTICAL PRODUCT COMPLAINT [None]
  - TINNITUS [None]
